FAERS Safety Report 7777989-6 (Version None)
Quarter: 2011Q3

REPORT INFORMATION
  Report Type: 
  Country: None (occurrence: None)
  Receive Date: 20110926
  Receipt Date: 20110914
  Transmission Date: 20111222
  Serious: No
  Sender: FDA-Public Use
  Company Number: US-BIOGENIDEC-2011BI035442

PATIENT
  Sex: Female

DRUGS (3)
  1. IBUPROFEN [Concomitant]
     Indication: PREMEDICATION
  2. AVONEX [Suspect]
     Indication: MULTIPLE SCLEROSIS
     Route: 030
     Dates: start: 20110412
  3. MELOXICAM [Concomitant]
     Indication: PREMEDICATION

REACTIONS (8)
  - DEPRESSED MOOD [None]
  - NAUSEA [None]
  - ABDOMINAL PAIN UPPER [None]
  - HEADACHE [None]
  - ANXIETY [None]
  - MENISCUS LESION [None]
  - MENISCUS OPERATION [None]
  - MUSCLE SPASMS [None]
